FAERS Safety Report 9769365 (Version 2)
Quarter: 2014Q1

REPORT INFORMATION
  Report Type: Report from Study
  Country: US (occurrence: US)
  Receive Date: 20131218
  Receipt Date: 20140121
  Transmission Date: 20141002
  Serious: Yes (Death, Other)
  Sender: FDA-Public Use
  Company Number: US-ASTELLAS-2013US013065

PATIENT
  Age: 68 Year
  Sex: Female

DRUGS (2)
  1. ERLOTINIB TABLET [Suspect]
     Indication: NEOPLASM MALIGNANT
     Dosage: UNK
     Route: 065
  2. CHEMOTHERAPEUTICS [Suspect]
     Indication: PRODUCT USED FOR UNKNOWN INDICATION
     Dosage: UNK
     Route: 065

REACTIONS (6)
  - Dysphagia [Unknown]
  - Abdominal distension [Unknown]
  - Asthenia [Unknown]
  - Alopecia [Unknown]
  - Hepatic cancer metastatic [Fatal]
  - Malignant neoplasm progression [Fatal]
